FAERS Safety Report 14514626 (Version 5)
Quarter: 2018Q3

REPORT INFORMATION
  Report Type: Spontaneous
  Country: US (occurrence: US)
  Receive Date: 20180209
  Receipt Date: 20180907
  Transmission Date: 20181010
  Serious: Yes (Death, Hospitalization, Other)
  Sender: FDA-Public Use
  Company Number: US-ACTELION-A-US2017-164185

PATIENT
  Age: 42 Year
  Sex: Male

DRUGS (10)
  1. VELETRI [Suspect]
     Active Substance: EPOPROSTENOL
     Indication: PULMONARY HYPERTENSION
     Dosage: 10 NG/KG, PER MIN
     Route: 042
     Dates: start: 20171118, end: 20180703
  2. LEVOTHYROXINE. [Concomitant]
     Active Substance: LEVOTHYROXINE
  3. DEXILANT [Concomitant]
     Active Substance: DEXLANSOPRAZOLE
  4. METOPROLOL SUCCINATE. [Concomitant]
     Active Substance: METOPROLOL SUCCINATE
  5. FERROUS SULFATE. [Concomitant]
     Active Substance: FERROUS SULFATE
  6. LASIX [Concomitant]
     Active Substance: FUROSEMIDE
  7. ENULOSE [Concomitant]
     Active Substance: LACTULOSE
  8. RIFAXIMIN. [Concomitant]
     Active Substance: RIFAXIMIN
  9. FOLIC ACID. [Concomitant]
     Active Substance: FOLIC ACID
  10. SPIRONOLACTONE. [Concomitant]
     Active Substance: SPIRONOLACTONE

REACTIONS (15)
  - Hepatic cancer [Unknown]
  - Pain in jaw [Not Recovered/Not Resolved]
  - Fatigue [Unknown]
  - Diarrhoea [Unknown]
  - Headache [Unknown]
  - Weight decreased [Unknown]
  - Dyspnoea exertional [Unknown]
  - Cardiac arrest [Fatal]
  - Vomiting [Unknown]
  - Encephalopathy [Unknown]
  - Retching [Unknown]
  - Decreased appetite [Unknown]
  - Liver disorder [Unknown]
  - Pain [Unknown]
  - Nausea [Unknown]

NARRATIVE: CASE EVENT DATE: 20171206
